FAERS Safety Report 14308424 (Version 7)
Quarter: 2018Q1

REPORT INFORMATION
  Report Type: Spontaneous
  Country: JP (occurrence: JP)
  Receive Date: 20171220
  Receipt Date: 20180307
  Transmission Date: 20180509
  Serious: Yes (Death, Hospitalization, Other)
  Sender: FDA-Public Use
  Company Number: JP-PFIZER INC-2017539143

PATIENT
  Age: 82 Year
  Sex: Male

DRUGS (9)
  1. CYSCHOLIN [Concomitant]
     Indication: CEREBRAL INFARCTION
     Dosage: 1000 MG, 1X/DAY
     Route: 041
  2. LANSOPRAZOLE. [Concomitant]
     Active Substance: LANSOPRAZOLE
     Indication: HYPERCHLORHYDRIA
     Dosage: 15 MG, ONCE DAILY, AFTER MEAL
     Route: 048
     Dates: start: 20130218, end: 20170614
  3. ELIQUIS [Concomitant]
     Active Substance: APIXABAN
     Indication: THROMBOSIS PROPHYLAXIS
     Dosage: 2.5 MG, TWICE DAILY, AFTER MEAL
     Route: 048
     Dates: start: 20131122, end: 20170614
  4. SENNOSIDE /00571901/ [Concomitant]
     Active Substance: SENNOSIDES A AND B
     Indication: CONSTIPATION
     Dosage: 24 MG, FOR CONSTIPATION
     Route: 048
     Dates: start: 20160324, end: 20170605
  5. HARNAL [Concomitant]
     Active Substance: TAMSULOSIN HYDROCHLORIDE
     Indication: DYSURIA
     Dosage: 0.2 MG, ONCE DAILY, AFTER MEAL
     Route: 048
     Dates: start: 19931104, end: 20170605
  6. XARELTO [Concomitant]
     Active Substance: RIVAROXABAN
     Indication: THROMBOSIS PROPHYLAXIS
     Dosage: 10 MG, ONCE DAILY, AFTER MEAL
     Route: 048
     Dates: start: 20130218, end: 20130326
  7. ACECOL /01277402/ [Concomitant]
     Active Substance: TEMOCAPRIL HYDROCHLORIDE
     Indication: HYPERTENSION
     Dosage: 4 MG, ONCE DAILY, AFTER MEAL
     Route: 048
     Dates: start: 19871106, end: 20170614
  8. LIPITOR [Suspect]
     Active Substance: ATORVASTATIN CALCIUM
     Indication: LIPIDS ABNORMAL
     Dosage: 5 MG, ONCE DAILY, AFTER MEAL
     Route: 048
     Dates: start: 20070210, end: 20170614
  9. JANUVIA [Concomitant]
     Active Substance: SITAGLIPTIN PHOSPHATE
     Dosage: 12.5 MG, 1X/DAY
     Route: 065

REACTIONS (7)
  - Marasmus [Fatal]
  - Cerebral infarction [Recovering/Resolving]
  - Gastrooesophageal reflux disease [Recovering/Resolving]
  - Pain [Unknown]
  - Blood creatine phosphokinase increased [Unknown]
  - Rhabdomyolysis [Unknown]
  - Constipation [Recovering/Resolving]

NARRATIVE: CASE EVENT DATE: 20130218
